FAERS Safety Report 13463331 (Version 4)
Quarter: 2019Q3

REPORT INFORMATION
  Report Type: Report from Study
  Country: US (occurrence: US)
  Receive Date: 20170420
  Receipt Date: 20190922
  Transmission Date: 20191004
  Serious: Yes (Hospitalization)
  Sender: FDA-Public Use
  Company Number: US-CELGENEUS-USA-20170406058

PATIENT
  Age: 53 Year
  Sex: Male
  Weight: 89.58 kg

DRUGS (53)
  1. ROCURONIUM [Concomitant]
     Active Substance: ROCURONIUM BROMIDE
     Indication: OESOPHAGOGASTRODUODENOSCOPY
     Dosage: 20 MILLIGRAM
     Route: 041
     Dates: start: 20170411, end: 20170411
  2. ABI-007 [Suspect]
     Active Substance: PACLITAXEL
     Dosage: 75 MG/M2/DAY
     Route: 041
     Dates: start: 20170329, end: 20170405
  3. BEVACIZUMAB. [Suspect]
     Active Substance: BEVACIZUMAB
     Indication: PANCREATIC CARCINOMA METASTATIC
     Dosage: 5 MILLIGRAM/KILOGRAM
     Route: 041
     Dates: start: 20170301, end: 20170328
  4. LEUCOVORIN (FOLINIC ACID) [Suspect]
     Active Substance: LEUCOVORIN
     Dosage: 20 MILLIGRAM/SQ. METER
     Route: 041
     Dates: start: 20170329, end: 20170405
  5. IBUPROFEN. [Concomitant]
     Active Substance: IBUPROFEN
     Indication: ABDOMINAL DISCOMFORT
     Dosage: 600 MILLIGRAM
     Route: 048
     Dates: start: 201601, end: 20170405
  6. TEMAZEPAM. [Concomitant]
     Active Substance: TEMAZEPAM
     Indication: INSOMNIA
     Dosage: 15 MILLIGRAM
     Route: 048
     Dates: start: 20170406, end: 20170413
  7. MAGNESIUM SULFATE. [Concomitant]
     Active Substance: MAGNESIUM SULFATE
     Dosage: 10 MILLIGRAM
     Route: 048
     Dates: start: 20170401
  8. OXALIPLATIN. [Suspect]
     Active Substance: OXALIPLATIN
     Dosage: 40 MILLIGRAM/SQ. METER
     Route: 041
     Dates: start: 20170329, end: 20170405
  9. OXALIPLATIN. [Suspect]
     Active Substance: OXALIPLATIN
     Dosage: 40 MILLIGRAM/SQ. METER
     Route: 041
     Dates: start: 20170502
  10. OMEPRAZOLE. [Concomitant]
     Active Substance: OMEPRAZOLE
     Indication: UPPER GASTROINTESTINAL HAEMORRHAGE
     Dosage: 80 MILLIGRAM
     Route: 048
     Dates: start: 20170415
  11. VICODIN [Concomitant]
     Active Substance: ACETAMINOPHEN\HYDROCODONE BITARTRATE
     Indication: ABDOMINAL DISCOMFORT
     Dosage: 5-500MG
     Route: 048
     Dates: start: 201701
  12. BACLOFEN. [Concomitant]
     Active Substance: BACLOFEN
     Indication: PROPHYLAXIS
     Dosage: 10 MILLIGRAM
     Route: 048
     Dates: start: 20170308
  13. DOCUSATE [Concomitant]
     Active Substance: DOCUSATE
     Indication: CONSTIPATION PROPHYLAXIS
     Dosage: 100 MILLIGRAM
     Route: 048
     Dates: start: 20170414
  14. PRBC [Concomitant]
     Active Substance: HUMAN RED BLOOD CELL
     Indication: UPPER GASTROINTESTINAL HAEMORRHAGE
     Dosage: 2 UNITS
     Route: 041
     Dates: start: 20170412, end: 20170412
  15. BEVACIZUMAB. [Suspect]
     Active Substance: BEVACIZUMAB
     Dosage: 5 MILLIGRAM/KILOGRAM
     Route: 041
     Dates: start: 20170502
  16. LEUCOVORIN (FOLINIC ACID) [Suspect]
     Active Substance: LEUCOVORIN
     Indication: PANCREATIC CARCINOMA METASTATIC
     Dosage: 20 MILLIGRAM/SQ. METER
     Route: 041
     Dates: start: 20170301, end: 20170328
  17. PROPOFOL. [Concomitant]
     Active Substance: PROPOFOL
     Dosage: 131.352 MILLIGRAM
     Route: 041
     Dates: start: 20170411, end: 20170411
  18. ALBUTEROL. [Concomitant]
     Active Substance: ALBUTEROL
     Indication: OESOPHAGOGASTRODUODENOSCOPY
     Dosage: 2.5 GRAM
     Route: 065
     Dates: start: 20170411, end: 20170411
  19. FENTANYL. [Concomitant]
     Active Substance: FENTANYL
     Indication: OESOPHAGOGASTRODUODENOSCOPY
     Dosage: 25 MICROGRAM
     Route: 065
     Dates: start: 20170411, end: 20170411
  20. OMEPRAZOLE. [Concomitant]
     Active Substance: OMEPRAZOLE
     Indication: GASTROOESOPHAGEAL REFLUX DISEASE
     Dosage: 80 MILLIGRAM
     Route: 048
     Dates: start: 20170413, end: 20170414
  21. DEXAMETHASONE. [Concomitant]
     Active Substance: DEXAMETHASONE
     Indication: PROPHYLAXIS
     Dosage: 10 MILLIGRAM
     Route: 048
     Dates: start: 20170301
  22. IMODIUM [Concomitant]
     Active Substance: LOPERAMIDE HYDROCHLORIDE
     Indication: DIARRHOEA
     Route: 048
     Dates: start: 20170312, end: 20170401
  23. PROCHLORPERAZINE. [Concomitant]
     Active Substance: PROCHLORPERAZINE
     Indication: PROPHYLAXIS OF NAUSEA AND VOMITING
     Dosage: 10 MILLIGRAM
     Route: 048
     Dates: start: 20170301, end: 20170328
  24. METOCLOPRAMIDE. [Concomitant]
     Active Substance: METOCLOPRAMIDE
     Indication: PROPHYLAXIS OF NAUSEA AND VOMITING
     Dosage: 10 MILLIGRAM
     Route: 048
     Dates: start: 20170329, end: 20170331
  25. PHENYLEPHRINE [Concomitant]
     Active Substance: PHENYLEPHRINE HYDROCHLORIDE
     Indication: PRODUCT USED FOR UNKNOWN INDICATION
     Dosage: 80 MICROGRAM
     Route: 041
     Dates: start: 20170411, end: 20170411
  26. NEOSTIGMINE. [Concomitant]
     Active Substance: NEOSTIGMINE METHYLSULFATE
     Indication: OESOPHAGOGASTRODUODENOSCOPY
     Dosage: 4 MILLIGRAM
     Route: 041
     Dates: start: 20170411, end: 20170411
  27. ADRUCIL [Suspect]
     Active Substance: FLUOROURACIL
     Indication: PANCREATIC CARCINOMA METASTATIC
     Dosage: 180 MG/M2/DAY
     Route: 041
     Dates: start: 20170301, end: 20170328
  28. ADRUCIL [Suspect]
     Active Substance: FLUOROURACIL
     Dosage: 180 MG/M2/DAY
     Route: 041
     Dates: start: 20170329, end: 20170405
  29. DEXAMETHASONE. [Concomitant]
     Active Substance: DEXAMETHASONE
     Indication: OESOPHAGOGASTRODUODENOSCOPY
     Dosage: 4 MILLIGRAM
     Route: 041
     Dates: start: 20170411, end: 20170411
  30. TEMAZEPAM. [Concomitant]
     Active Substance: TEMAZEPAM
     Dosage: 10 MILLIGRAM
     Route: 048
     Dates: start: 20170401
  31. MAGNESIUM SULFATE. [Concomitant]
     Active Substance: MAGNESIUM SULFATE
     Indication: HYPOMAGNESAEMIA
     Dosage: 2 GRAM
     Route: 041
     Dates: start: 20170408, end: 20170408
  32. SUCCINYLCHOLINE [Concomitant]
     Active Substance: SUCCINYLCHOLINE
     Indication: OESOPHAGOGASTRODUODENOSCOPY
     Dosage: 140 MILLIGRAM
     Route: 041
     Dates: start: 20170411, end: 20170411
  33. GLYCOPYRROLATE. [Concomitant]
     Active Substance: GLYCOPYRROLATE
     Indication: OESOPHAGOGASTRODUODENOSCOPY
     Dosage: .6 MILLIGRAM
     Route: 041
     Dates: start: 20170411, end: 20170411
  34. DEXTROMETHORPHAN-GUAIFENESIN [Concomitant]
     Active Substance: DEXTROMETHORPHAN\GUAIFENESIN
     Indication: COUGH
     Dosage: 5 MILLILITER
     Route: 048
     Dates: start: 20170412, end: 20170413
  35. ABI-007 [Suspect]
     Active Substance: PACLITAXEL
     Indication: PANCREATIC CARCINOMA METASTATIC
     Dosage: 75 MG/M2/DAY
     Route: 041
     Dates: start: 20170301, end: 20170328
  36. ABI-007 [Suspect]
     Active Substance: PACLITAXEL
     Dosage: 75 MG/M2/DAY
     Route: 041
     Dates: start: 20170502
  37. OXALIPLATIN. [Suspect]
     Active Substance: OXALIPLATIN
     Indication: PANCREATIC CARCINOMA METASTATIC
     Dosage: 40 MILLIGRAM/SQ. METER
     Route: 041
     Dates: start: 20170301, end: 20170328
  38. ADRUCIL [Suspect]
     Active Substance: FLUOROURACIL
     Dosage: 180 MG/M2/DAY
     Route: 041
     Dates: start: 20170502
  39. ASPIRIN. [Concomitant]
     Active Substance: ASPIRIN
     Indication: THROMBOSIS PROPHYLAXIS
     Dosage: 81 MILLIGRAM
     Route: 048
     Dates: start: 201610, end: 20170405
  40. METOCLOPRAMIDE. [Concomitant]
     Active Substance: METOCLOPRAMIDE
     Indication: ABDOMINAL DISTENSION
     Dosage: 10 MILLIGRAM
     Route: 048
     Dates: start: 20170401
  41. PROPOFOL. [Concomitant]
     Active Substance: PROPOFOL
     Dosage: 20 MILLIGRAM
     Route: 041
     Dates: start: 20170411, end: 20170411
  42. BENZONATATE. [Concomitant]
     Active Substance: BENZONATATE
     Indication: COUGH
     Dosage: 100 MILLIGRAM
     Route: 048
     Dates: start: 20170410, end: 20170412
  43. POTASSIUM CHLORIDE. [Concomitant]
     Active Substance: POTASSIUM CHLORIDE
     Indication: HYPOKALAEMIA
     Dosage: 40 MILLIEQUIVALENTS
     Route: 048
     Dates: start: 20170413, end: 20170413
  44. BEVACIZUMAB. [Suspect]
     Active Substance: BEVACIZUMAB
     Dosage: 5 MILLIGRAM/KILOGRAM
     Route: 041
     Dates: start: 20170329, end: 20170405
  45. LEUCOVORIN (FOLINIC ACID) [Suspect]
     Active Substance: LEUCOVORIN
     Dosage: 20 MILLIGRAM/SQ. METER
     Route: 041
     Dates: start: 20170502
  46. MULTIVITAMIN [Concomitant]
     Active Substance: VITAMINS
     Indication: SUPPLEMENTATION THERAPY
     Route: 048
     Dates: start: 201609
  47. OMEPRAZOLE. [Concomitant]
     Active Substance: OMEPRAZOLE
     Indication: PROPHYLAXIS
     Dosage: 20 MILLIGRAM
     Route: 048
     Dates: start: 20170301, end: 20170405
  48. CREON [Concomitant]
     Active Substance: PANCRELIPASE AMYLASE\PANCRELIPASE LIPASE\PANCRELIPASE PROTEASE
     Indication: PRODUCT USED FOR UNKNOWN INDICATION
     Dosage: 108000 IU (INTERNATIONAL UNIT)
     Route: 048
     Dates: start: 20160829
  49. LORAZEPAM. [Concomitant]
     Active Substance: LORAZEPAM
     Indication: PROPHYLAXIS
     Dosage: .5 MILLIGRAM
     Route: 048
     Dates: start: 20170301
  50. PROPOFOL. [Concomitant]
     Active Substance: PROPOFOL
     Indication: OESOPHAGOGASTRODUODENOSCOPY
     Dosage: 303.12 MILLIGRAM
     Route: 041
     Dates: start: 20170407, end: 20170407
  51. PROPOFOL. [Concomitant]
     Active Substance: PROPOFOL
     Dosage: 220 MILLIGRAM
     Route: 041
     Dates: start: 20170411, end: 20170411
  52. LIDOCAINE. [Concomitant]
     Active Substance: LIDOCAINE
     Indication: OESOPHAGOGASTRODUODENOSCOPY
     Dosage: 50 MILLIGRAM
     Route: 041
     Dates: start: 20170411, end: 20170411
  53. POLYETHYLENE GLYCOL 3350. [Concomitant]
     Active Substance: POLYETHYLENE GLYCOL 3350
     Indication: CONSTIPATION PROPHYLAXIS
     Dosage: 17 GRAM
     Route: 048
     Dates: start: 20170413, end: 20170413

REACTIONS (1)
  - Upper gastrointestinal haemorrhage [Recovered/Resolved]

NARRATIVE: CASE EVENT DATE: 20170406
